FAERS Safety Report 18404402 (Version 1)
Quarter: 2020Q4

REPORT INFORMATION
  Report Type: Spontaneous
  Country: US (occurrence: US)
  Receive Date: 20201020
  Receipt Date: 20201020
  Transmission Date: 20210114
  Serious: Yes (Life-Threatening)
  Sender: FDA-Public Use
  Company Number: None

PATIENT
  Age: 68 Year
  Sex: Female

DRUGS (3)
  1. DOCETAXEL INJECTION [Suspect]
     Active Substance: DOCETAXEL
     Indication: BREAST CANCER
     Dosage: ?          OTHER FREQUENCY:ONCE OVER 60 MIN;?
     Route: 042
     Dates: start: 20200904, end: 20200904
  2. PERTUZUMAB. [Concomitant]
     Active Substance: PERTUZUMAB
     Dates: start: 20200904, end: 20200904
  3. TRASTUZUMAB. [Concomitant]
     Active Substance: TRASTUZUMAB
     Dates: start: 20200904, end: 20200904

REACTIONS (7)
  - Dyspnoea [None]
  - Heart rate increased [None]
  - Pulmonary oedema [None]
  - Blood pressure increased [None]
  - Hypotension [None]
  - Infusion related reaction [None]
  - Cardiac arrest [None]

NARRATIVE: CASE EVENT DATE: 20200904
